FAERS Safety Report 9896172 (Version 1)
Quarter: 2014Q1

REPORT INFORMATION
  Report Type: Spontaneous
  Country: US (occurrence: US)
  Receive Date: 20140213
  Receipt Date: 20140213
  Transmission Date: 20141002
  Serious: No
  Sender: FDA-Public Use
  Company Number: US-BRISTOL-MYERS SQUIBB COMPANY-17320417

PATIENT
  Age: 35 Year
  Sex: Female

DRUGS (1)
  1. ABATACEPT SUBQ INJECTION 125MG/ML [Suspect]
     Dosage: INJECTION?LAST DOSE: 19DEC2012
     Route: 058
     Dates: end: 20121219

REACTIONS (1)
  - Nasopharyngitis [Unknown]
